FAERS Safety Report 14568394 (Version 1)
Quarter: 2018Q1

REPORT INFORMATION
  Report Type: Spontaneous
  Country: IN (occurrence: IN)
  Receive Date: 20180223
  Receipt Date: 20180223
  Transmission Date: 20180509
  Serious: Yes (Hospitalization, Other)
  Sender: FDA-Public Use
  Company Number: IN-PFIZER INC-2018068892

PATIENT
  Age: 16 Year
  Sex: Female
  Weight: 48 kg

DRUGS (7)
  1. IMIPENEM [Suspect]
     Active Substance: IMIPENEM
     Indication: TUBERCULOSIS
     Dosage: 1 G, 2X/DAY
     Route: 042
     Dates: start: 20170531
  2. CLOFAZIMINE [Suspect]
     Active Substance: CLOFAZIMINE
     Indication: TUBERCULOSIS
     Dosage: 100 MG, 1X/DAY
     Route: 048
     Dates: start: 20170531
  3. LINEZOLID. [Suspect]
     Active Substance: LINEZOLID
     Indication: TUBERCULOSIS
     Dosage: 600 MG, UNK
     Route: 048
     Dates: start: 20170814
  4. BEDAQUILINE [Suspect]
     Active Substance: BEDAQUILINE
     Indication: TUBERCULOSIS
     Dosage: 200 MG, UNK (THREE TIMES PER WEEK)
     Route: 048
     Dates: start: 20170531, end: 20180105
  5. DELAMANID [Suspect]
     Active Substance: DELAMANID
     Indication: TUBERCULOSIS
     Dosage: 100 MG, 2X/DAY
     Route: 048
     Dates: start: 20170731, end: 20180105
  6. AMOXICILLIN CLAVULANIC ACID [Suspect]
     Active Substance: AMOXICILLIN\CLAVULANIC ACID
     Indication: TUBERCULOSIS
     Dosage: 625 MG, 3X/DAY
     Route: 048
     Dates: start: 20170531
  7. AMIKACIN [Suspect]
     Active Substance: AMIKACIN
     Indication: TUBERCULOSIS
     Dosage: 500 MG, 1X/DAY
     Route: 030
     Dates: start: 20170907

REACTIONS (15)
  - Electrocardiogram QT prolonged [Recovered/Resolved]
  - Eye disorder [Unknown]
  - Drug administered to patient of inappropriate age [Unknown]
  - Dyspnoea [Unknown]
  - Hypoaesthesia [Unknown]
  - Asthenia [Unknown]
  - Platelet count increased [Unknown]
  - White blood cell count increased [Unknown]
  - Red blood cell count increased [Unknown]
  - Headache [Unknown]
  - Paraesthesia [Unknown]
  - Cough [Unknown]
  - Dizziness [Unknown]
  - Infection [Recovered/Resolved]
  - Palpitations [Unknown]

NARRATIVE: CASE EVENT DATE: 20180105
